FAERS Safety Report 6188390-3 (Version None)
Quarter: 2009Q2

REPORT INFORMATION
  Report Type: 
  Country: None (occurrence: None)
  Receive Date: 20090513
  Receipt Date: 20090504
  Transmission Date: 20091009
  Serious: Yes (Hospitalization)
  Sender: FDA-Public Use
  Company Number: FR-ABBOTT-09P-056-0558907-00

PATIENT
  Sex: Male
  Weight: 90 kg

DRUGS (6)
  1. MONOZECLAR [Suspect]
     Indication: COUGH
     Route: 048
  2. MONOZECLAR [Suspect]
     Indication: BRONCHITIS
  3. PNEUMOREL [Concomitant]
     Indication: DRUG USE FOR UNKNOWN INDICATION
  4. HELICIDINE [Concomitant]
     Indication: DRUG USE FOR UNKNOWN INDICATION
  5. LARGACTIL [Concomitant]
     Indication: DRUG USE FOR UNKNOWN INDICATION
     Route: 048
  6. IMOVANE [Concomitant]
     Indication: DRUG USE FOR UNKNOWN INDICATION

REACTIONS (8)
  - C-REACTIVE PROTEIN INCREASED [None]
  - CANDIDIASIS [None]
  - EROSIVE OESOPHAGITIS [None]
  - FUNGAL OESOPHAGITIS [None]
  - GASTRITIS EROSIVE [None]
  - GASTROOESOPHAGITIS [None]
  - HICCUPS [None]
  - HYPOKALAEMIA [None]
